FAERS Safety Report 9452669 (Version 1)
Quarter: 2013Q3

REPORT INFORMATION
  Report Type: Spontaneous
  Country: US (occurrence: US)
  Receive Date: 20130812
  Receipt Date: 20130812
  Transmission Date: 20140515
  Serious: No
  Sender: FDA-Public Use
  Company Number: US-PFIZER INC-2013233142

PATIENT
  Age: 29 Year
  Sex: Female

DRUGS (1)
  1. LYRICA [Suspect]
     Dosage: UNK
     Dates: start: 2006

REACTIONS (9)
  - Panic attack [Unknown]
  - Insomnia [Unknown]
  - Irritability [Unknown]
  - Tremor [Unknown]
  - Drug intolerance [Unknown]
  - Anxiety [Unknown]
  - Mood altered [Unknown]
  - Agitation [Unknown]
  - Weight increased [Unknown]
